FAERS Safety Report 25540521 (Version 1)
Quarter: 2025Q3

REPORT INFORMATION
  Report Type: Spontaneous
  Country: SA (occurrence: SA)
  Receive Date: 20250710
  Receipt Date: 20250710
  Transmission Date: 20251020
  Serious: Yes (Death)
  Sender: AMGEN
  Company Number: SA-AMGEN-SAUSP2025134871

PATIENT
  Age: 85 Year
  Sex: Female
  Weight: 77 kg

DRUGS (6)
  1. REPATHA [Suspect]
     Active Substance: EVOLOCUMAB
     Indication: Type IIa hyperlipidaemia
     Dosage: 140 MILLIGRAM, Q2WK
     Route: 058
     Dates: start: 20191227, end: 2023
  2. SIMVASTATIN [Concomitant]
     Active Substance: SIMVASTATIN
     Indication: Type IIa hyperlipidaemia
     Dosage: 20 MILLIGRAM, QD
     Dates: start: 20080101
  3. CAPTOPRIL [Concomitant]
     Active Substance: CAPTOPRIL
     Dosage: 25 MILLIGRAM, BID
     Dates: start: 20100101
  4. CARVEDILOL [Concomitant]
     Active Substance: CARVEDILOL
     Dosage: 6.25 MILLIGRAM, BID
     Dates: start: 20100101
  5. ASPIRIN [Concomitant]
     Active Substance: ASPIRIN
     Dosage: 82 MILLIGRAM, QD
     Dates: start: 20100101
  6. FUROSEMIDE [Concomitant]
     Active Substance: FUROSEMIDE
     Dosage: 20 MILLIGRAM, QD
     Dates: start: 20100101

REACTIONS (1)
  - Death [Fatal]
